FAERS Safety Report 7131022-8 (Version None)
Quarter: 2010Q4

REPORT INFORMATION
  Report Type: 
  Country: None (occurrence: None)
  Receive Date: 20101201
  Receipt Date: 20101123
  Transmission Date: 20110411
  Serious: Yes (Hospitalization)
  Sender: FDA-Public Use
  Company Number: B0684842A

PATIENT
  Age: 50 Year
  Sex: Female
  Weight: 58 kg

DRUGS (13)
  1. LAPATINIB [Suspect]
     Indication: PANCREATIC CARCINOMA
     Dosage: 1500MG PER DAY
     Route: 048
  2. OXALIPLATIN [Suspect]
     Indication: PANCREATIC CARCINOMA
     Dosage: 150MG PER DAY
     Route: 065
  3. FLUOROURACIL [Suspect]
     Indication: PANCREATIC CARCINOMA
     Dosage: 3500MG PER DAY
     Route: 065
  4. FOLINIC ACID [Suspect]
     Indication: PANCREATIC CARCINOMA
     Dosage: 350MG PER DAY
     Route: 065
  5. PANTOZOL [Suspect]
     Indication: PROPHYLAXIS
     Dosage: 40MG PER DAY
  6. FENTANYL [Concomitant]
     Indication: PAIN
     Dates: start: 20101025
  7. ZOFRAN [Concomitant]
     Indication: NAUSEA
     Dates: start: 20101025
  8. CREON [Concomitant]
  9. NOVAMINSULFON [Concomitant]
     Indication: PAIN
     Dates: start: 20100621
  10. VERGENTAN [Concomitant]
     Indication: NAUSEA
     Dates: start: 20100906
  11. LOPERAMIDE [Concomitant]
     Indication: DIARRHOEA
     Dates: start: 20100726
  12. UNKNOWN [Concomitant]
     Dosage: 15DROP THREE TIMES PER DAY
     Dates: start: 20100825
  13. STILNOX [Concomitant]
     Indication: INSOMNIA
     Dosage: 10MG AS REQUIRED
     Dates: start: 20101108

REACTIONS (3)
  - DRUG INTERACTION [None]
  - GASTROINTESTINAL HAEMORRHAGE [None]
  - HAEMOGLOBIN DECREASED [None]
